FAERS Safety Report 9189179 (Version 1)
Quarter: 2013Q1

REPORT INFORMATION
  Report Type: Spontaneous
  Country: US (occurrence: US)
  Receive Date: 20130326
  Receipt Date: 20130326
  Transmission Date: 20140127
  Serious: Yes (Other)
  Sender: FDA-Public Use
  Company Number: US-B.I. PHARMACEUTICALS,INC./RIDGEFIELD-2013-BI-06942BP

PATIENT
  Age: 81 Year
  Sex: Female
  Weight: 62 kg

DRUGS (1)
  1. DULCOLAX [Suspect]
     Indication: CONSTIPATION
     Route: 054
     Dates: start: 2011

REACTIONS (2)
  - Hepatic cancer stage IV [Not Recovered/Not Resolved]
  - Constipation [Not Recovered/Not Resolved]
